FAERS Safety Report 9309733 (Version 1)
Quarter: 2013Q2

REPORT INFORMATION
  Report Type: Spontaneous
  Country: US (occurrence: US)
  Receive Date: 20130525
  Receipt Date: 20130525
  Transmission Date: 20140414
  Serious: No
  Sender: FDA-Public Use
  Company Number: US-BRISTOL-MYERS SQUIBB COMPANY-18737585

PATIENT
  Age: 53 Year
  Sex: Male
  Weight: 104.31 kg

DRUGS (9)
  1. BYDUREON [Suspect]
     Indication: TYPE 2 DIABETES MELLITUS
     Route: 058
     Dates: start: 20130319
  2. BYETTA [Suspect]
     Indication: TYPE 2 DIABETES MELLITUS
     Route: 058
     Dates: start: 201209
  3. METFORMIN [Concomitant]
     Indication: TYPE 2 DIABETES MELLITUS
     Route: 048
  4. PIOGLITAZONE HCL [Concomitant]
     Indication: TYPE 2 DIABETES MELLITUS
     Route: 048
  5. AMLODIPINE [Concomitant]
     Indication: HYPERTENSION
  6. ATENOLOL [Concomitant]
     Indication: HYPERTENSION
  7. NAPROXEN [Concomitant]
  8. FUROSEMIDE [Concomitant]
  9. LOVAZA [Concomitant]
     Indication: BLOOD TRIGLYCERIDES INCREASED

REACTIONS (8)
  - Blood glucose abnormal [Not Recovered/Not Resolved]
  - Nausea [Unknown]
  - Injection site mass [Recovered/Resolved]
  - Injection site haemorrhage [Recovered/Resolved]
  - Injection site swelling [Recovered/Resolved]
  - Drug effect decreased [Not Recovered/Not Resolved]
  - Intentional drug misuse [Recovered/Resolved]
  - Inappropriate schedule of drug administration [Unknown]
